FAERS Safety Report 5245568-0 (Version None)
Quarter: 2007Q1

REPORT INFORMATION
  Report Type: 
  Country: None (occurrence: None)
  Receive Date: 20070216
  Receipt Date: 20070202
  Transmission Date: 20070707
  Serious: Yes (Other)
  Sender: FDA-Public Use
  Company Number: T06-CAN-02619-01

PATIENT
  Age: 85 Year
  Sex: Male
  Weight: 69.5 kg

DRUGS (7)
  1. CIPRALEX (ESCITALOPRAM) [Suspect]
     Indication: DEPRESSION
     Dosage: 5 MG QD PO
     Route: 048
     Dates: start: 20060617, end: 20060623
  2. PHENOBARBITAL TAB [Concomitant]
  3. ALTACE [Concomitant]
  4. FUROSEMIDE [Concomitant]
  5. LIPITOR [Concomitant]
  6. NOVASEN (ACETYLSALICYLIC ACID) [Concomitant]
  7. ALLOPURINOL [Concomitant]

REACTIONS (2)
  - CEREBRAL INFARCTION [None]
  - LOSS OF CONSCIOUSNESS [None]
